FAERS Safety Report 4710457-4 (Version None)
Quarter: 2005Q3

REPORT INFORMATION
  Report Type: 
  Country: None (occurrence: None)
  Receive Date: 20050711
  Receipt Date: 20050627
  Transmission Date: 20060218
  Serious: Yes (Disabling)
  Sender: FDA-Public Use
  Company Number: NSADSS2002032978

PATIENT
  Age: 53 Year
  Sex: Male
  Weight: 70 kg

DRUGS (3)
  1. OFLOXACIN [Suspect]
     Indication: URINARY TRACT INFECTION
     Route: 049
     Dates: start: 20020601, end: 20020614
  2. OFLOXACIN [Suspect]
     Indication: PROSTATITIS
     Route: 049
     Dates: start: 20020601, end: 20020614
  3. ENOXOR [Suspect]
     Indication: PROSTATITIS
     Route: 049
     Dates: start: 20020614, end: 20020617

REACTIONS (2)
  - ARTHRALGIA [None]
  - FIBROMATOSIS [None]
